FAERS Safety Report 9422785 (Version 1)
Quarter: 2013Q3

REPORT INFORMATION
  Report Type: Spontaneous
  Country: FR (occurrence: FR)
  Receive Date: 20130726
  Receipt Date: 20130726
  Transmission Date: 20140515
  Serious: Yes (Other)
  Sender: FDA-Public Use
  Company Number: FR-ASTRAZENECA-2013SE50406

PATIENT
  Age: 32428 Day
  Sex: Female
  Weight: 68 kg

DRUGS (1)
  1. FASLODEX [Suspect]
     Indication: BREAST CANCER
     Route: 030
     Dates: start: 20130624, end: 20130624

REACTIONS (1)
  - Incorrect dose administered [Not Recovered/Not Resolved]
